FAERS Safety Report 25207398 (Version 1)
Quarter: 2025Q2

REPORT INFORMATION
  Report Type: Spontaneous
  Country: BR (occurrence: BR)
  Receive Date: 20250417
  Receipt Date: 20250417
  Transmission Date: 20250716
  Serious: Yes (Life-Threatening, Hospitalization)
  Sender: ACCORD
  Company Number: BR-Accord-479189

PATIENT
  Age: 47 Year
  Sex: Female
  Weight: 77 kg

DRUGS (25)
  1. METHOTREXATE [Suspect]
     Active Substance: METHOTREXATE
     Indication: Diffuse large B-cell lymphoma
     Dosage: 3.5 G/M2 (INFUSION 24-H AT A DOSE OF 3.5 G/M2)
  2. CYCLOPHOSPHAMIDE [Concomitant]
     Active Substance: CYCLOPHOSPHAMIDE
     Indication: Diffuse large B-cell lymphoma
  3. DOXORUBICIN [Concomitant]
     Active Substance: DOXORUBICIN
     Indication: Diffuse large B-cell lymphoma
  4. LEUCOVORIN [Concomitant]
     Active Substance: LEUCOVORIN\LEUCOVORIN CALCIUM
  5. PREDNISONE [Concomitant]
     Active Substance: PREDNISONE
     Indication: Diffuse large B-cell lymphoma
  6. RITUXIMAB [Concomitant]
     Active Substance: RITUXIMAB
     Indication: Diffuse large B-cell lymphoma
  7. VINCRISTINE [Concomitant]
     Active Substance: VINCRISTINE
     Indication: Diffuse large B-cell lymphoma
  8. VINCRISTINE [Concomitant]
     Active Substance: VINCRISTINE
     Indication: Primary breast lymphoma
  9. VINCRISTINE [Concomitant]
     Active Substance: VINCRISTINE
     Indication: Prophylactic chemotherapy
  10. VINCRISTINE [Concomitant]
     Active Substance: VINCRISTINE
     Indication: Central nervous system neoplasm
  11. DOXORUBICIN [Concomitant]
     Active Substance: DOXORUBICIN
     Indication: Primary breast lymphoma
  12. DOXORUBICIN [Concomitant]
     Active Substance: DOXORUBICIN
     Indication: Prophylactic chemotherapy
  13. DOXORUBICIN [Concomitant]
     Active Substance: DOXORUBICIN
     Indication: Central nervous system neoplasm
  14. RITUXIMAB [Concomitant]
     Active Substance: RITUXIMAB
     Indication: Primary breast lymphoma
  15. RITUXIMAB [Concomitant]
     Active Substance: RITUXIMAB
     Indication: Prophylactic chemotherapy
  16. RITUXIMAB [Concomitant]
     Active Substance: RITUXIMAB
     Indication: Central nervous system neoplasm
  17. CYCLOPHOSPHAMIDE [Concomitant]
     Active Substance: CYCLOPHOSPHAMIDE
     Indication: Primary breast lymphoma
  18. CYCLOPHOSPHAMIDE [Concomitant]
     Active Substance: CYCLOPHOSPHAMIDE
     Indication: Prophylactic chemotherapy
  19. CYCLOPHOSPHAMIDE [Concomitant]
     Active Substance: CYCLOPHOSPHAMIDE
     Indication: Central nervous system neoplasm
  20. METHOTREXATE [Suspect]
     Active Substance: METHOTREXATE
     Indication: Primary breast lymphoma
     Dosage: 3.5 G/M2 (INFUSION 24-H AT A DOSE OF 3.5 G/M2)
  21. METHOTREXATE [Suspect]
     Active Substance: METHOTREXATE
     Indication: Prophylactic chemotherapy
     Dosage: 3.5 G/M2 (INFUSION 24-H AT A DOSE OF 3.5 G/M2)
  22. METHOTREXATE [Suspect]
     Active Substance: METHOTREXATE
     Indication: Central nervous system neoplasm
     Dosage: 3.5 G/M2 (INFUSION 24-H AT A DOSE OF 3.5 G/M2)
  23. PREDNISONE [Concomitant]
     Active Substance: PREDNISONE
     Indication: Prophylaxis
  24. PREDNISONE [Concomitant]
     Active Substance: PREDNISONE
     Indication: Primary breast lymphoma
  25. PREDNISONE [Concomitant]
     Active Substance: PREDNISONE
     Indication: Central nervous system neoplasm

REACTIONS (4)
  - Acute kidney injury [Recovering/Resolving]
  - Mucosal inflammation [Unknown]
  - Myelosuppression [Unknown]
  - Toxicity to various agents [Unknown]
